FAERS Safety Report 24768215 (Version 1)
Quarter: 2024Q4

REPORT INFORMATION
  Report Type: Spontaneous
  Country: PT (occurrence: PT)
  Receive Date: 20241223
  Receipt Date: 20241223
  Transmission Date: 20250114
  Serious: Yes (Other)
  Sender: SANDOZ
  Company Number: PT-SZ09-PHHY2018PT062690

PATIENT
  Age: 57 Year
  Sex: Male

DRUGS (7)
  1. CARBOPLATIN [Suspect]
     Active Substance: CARBOPLATIN
     Indication: Lung adenocarcinoma stage III
     Dosage: UNK (RECEIVED VINORELBINE WITH CARBOPLATINUM AT AN UNKNOWN DOSAGE) RECEIVED CARBOPLATINUM REGIMEN CO
     Route: 065
  2. PEMETREXED [Suspect]
     Active Substance: PEMETREXED
     Indication: Lung adenocarcinoma stage III
     Dosage: 500 MG/M2, EVERY 21 DAYS
     Route: 065
  3. VINORELBINE [Suspect]
     Active Substance: VINORELBINE TARTRATE
     Indication: Lung adenocarcinoma stage III
     Dosage: UNK (RECEIVED VINORELBINE WITH CARBOPLATINUM AT AN UNKNOWN DOSAGE)
     Route: 065
  4. FOLIC ACID [Concomitant]
     Active Substance: FOLIC ACID
     Indication: Supplementation therapy
     Dosage: 5 MG, QD
     Route: 048
  5. FOLIC ACID [Concomitant]
     Active Substance: FOLIC ACID
     Indication: Supportive care
  6. VITAMIN B12 [Concomitant]
     Active Substance: CYANOCOBALAMIN
     Indication: Supplementation therapy
     Dosage: 9/9W
     Route: 030
  7. VITAMIN B12 [Concomitant]
     Active Substance: CYANOCOBALAMIN
     Indication: Supportive care

REACTIONS (2)
  - Organising pneumonia [Recovering/Resolving]
  - Off label use [Unknown]
